FAERS Safety Report 12469441 (Version 2)
Quarter: 2016Q3

REPORT INFORMATION
  Report Type: Spontaneous
  Country: US (occurrence: US)
  Receive Date: 20160615
  Receipt Date: 20160708
  Transmission Date: 20161109
  Serious: Yes (Life-Threatening, Hospitalization, Other)
  Sender: FDA-Public Use
  Company Number: US-ACTELION-A-NJ2016-137368

PATIENT
  Age: 28 Year
  Sex: Female

DRUGS (9)
  1. ACITROM [Concomitant]
     Active Substance: ACENOCOUMAROL
     Dosage: 1 MG, QD
     Dates: start: 20140825
  2. LASILACTONE [Suspect]
     Active Substance: FUROSEMIDE\SPIRONOLACTONE
     Indication: POLYURIA
     Dosage: 50 MG, QD
     Route: 065
     Dates: start: 20160403, end: 20160404
  3. LASILACTONE [Suspect]
     Active Substance: FUROSEMIDE\SPIRONOLACTONE
     Indication: POLYURIA
     Dosage: 50 MG, QD
     Route: 065
     Dates: start: 20160403, end: 20160404
  4. TRACLEER [Suspect]
     Active Substance: BOSENTAN
     Dosage: 62.5 MG, BID
     Route: 048
     Dates: start: 20160404, end: 20160404
  5. SILDENAFIL. [Concomitant]
     Active Substance: SILDENAFIL
     Indication: PULMONARY ARTERIAL HYPERTENSION
     Dosage: 25 MG
  6. TRACLEER [Suspect]
     Active Substance: BOSENTAN
     Indication: PULMONARY ARTERIAL HYPERTENSION
     Dosage: 125 MG, QD
     Route: 048
     Dates: start: 20140825, end: 20160404
  7. TREPROSTINIL [Suspect]
     Active Substance: TREPROSTINIL
     Dosage: UNK
     Route: 065
     Dates: start: 20101126
  8. CAVERTA [Suspect]
     Active Substance: SILDENAFIL CITRATE
     Indication: PULMONARY ARTERIAL HYPERTENSION
     Dosage: 25 MG, BID
     Route: 065
     Dates: start: 20160403, end: 20160404
  9. TREPROSTINIL [Suspect]
     Active Substance: TREPROSTINIL
     Indication: PRODUCT USED FOR UNKNOWN INDICATION
     Dosage: 5 MG, BID
     Route: 048
     Dates: start: 20121121

REACTIONS (9)
  - Chest pain [Recovered/Resolved]
  - Aspartate aminotransferase increased [Unknown]
  - Back pain [Unknown]
  - Hypoglycaemia [Recovered/Resolved]
  - Headache [Recovered/Resolved]
  - Ventricular tachycardia [Recovered/Resolved]
  - Syncope [Recovered/Resolved]
  - Hypotension [Recovered/Resolved]
  - Unresponsive to stimuli [Unknown]
